FAERS Safety Report 9067588 (Version 1)
Quarter: 2013Q1

REPORT INFORMATION
  Report Type: Spontaneous
  Country: BR (occurrence: BR)
  Receive Date: 20130129
  Receipt Date: 20130129
  Transmission Date: 20140127
  Serious: Yes (Other)
  Sender: FDA-Public Use
  Company Number: PHHY2013BR006885

PATIENT
  Age: 46 Year
  Sex: Female
  Weight: 60 kg

DRUGS (2)
  1. DIOVAN HCT [Suspect]
     Indication: HYPERTENSION
     Dosage: 1 DF (320 MG VALS AND 12.5 MG HCTZ), A DAY
     Route: 048
     Dates: start: 201207
  2. DIOVAN [Suspect]
     Indication: HYPERTENSION
     Dosage: 160 MG, A DAY
     Route: 048
     Dates: start: 201103, end: 201207

REACTIONS (1)
  - Blood cholesterol increased [Unknown]
